FAERS Safety Report 7234776-5 (Version None)
Quarter: 2011Q1

REPORT INFORMATION
  Report Type: 
  Country: None (occurrence: None)
  Receive Date: 20110120
  Receipt Date: 20110114
  Transmission Date: 20110831
  Serious: Yes (Hospitalization)
  Sender: FDA-Public Use
  Company Number: DE-TEVA-260255GER

PATIENT
  Sex: Male

DRUGS (11)
  1. PREDNISOLONE [Suspect]
     Indication: PROSTATE CANCER METASTATIC
     Route: 048
     Dates: start: 20100505
  2. ABIRATERONE ACETATE [Suspect]
     Indication: PROSTATE CANCER METASTATIC
     Route: 048
     Dates: start: 20100505, end: 20101208
  3. TRENANTONE [Concomitant]
     Dates: start: 20100421
  4. ZOMETA [Concomitant]
     Indication: PROPHYLAXIS
     Dates: start: 20091222
  5. DICLOFENAC SODIUM [Concomitant]
     Indication: CANCER PAIN
     Route: 048
     Dates: start: 20101001
  6. ZOMETA [Concomitant]
     Indication: HORMONE THERAPY
     Dates: start: 20081222
  7. TRENANTONE [Concomitant]
     Indication: HORMONE THERAPY
     Dates: start: 20091222
  8. METAMIZOLE SODIUM [Concomitant]
     Indication: CANCER PAIN
     Dosage: 40 GTT AS REQUIRED
     Route: 048
     Dates: start: 20100811
  9. PANTOPRAZOLE [Concomitant]
     Indication: PROPHYLAXIS AGAINST GASTROINTESTINAL ULCER
     Route: 048
     Dates: start: 20101001
  10. PLACEBO [Suspect]
     Indication: PROSTATE CANCER METASTATIC
     Route: 048
     Dates: start: 20100505, end: 20101208
  11. TRENANTONE [Concomitant]
     Indication: PROPHYLAXIS
     Dates: start: 20091222

REACTIONS (3)
  - PANCYTOPENIA [None]
  - ANAEMIA [None]
  - NEOPLASM MALIGNANT [None]
